FAERS Safety Report 6395420-2 (Version None)
Quarter: 2009Q4

REPORT INFORMATION
  Report Type: 
  Country: None (occurrence: None)
  Receive Date: 20091009
  Receipt Date: 20090928
  Transmission Date: 20100525
  Serious: Yes (Hospitalization, Other)
  Sender: FDA-Public Use
  Company Number: US-PFIZER INC-2009275691

PATIENT
  Age: 21 Year
  Sex: Male

DRUGS (1)
  1. LINEZOLID [Suspect]
     Indication: OSTEOMYELITIS
     Dosage: 600 MG, 2X/DAY
     Route: 048

REACTIONS (1)
  - TUBULOINTERSTITIAL NEPHRITIS [None]
